FAERS Safety Report 5322695-0 (Version None)
Quarter: 2007Q2

REPORT INFORMATION
  Report Type: 
  Country: None (occurrence: None)
  Receive Date: 20070507
  Receipt Date: 20070501
  Transmission Date: 20071010
  Serious: Yes (Hospitalization, Other)
  Sender: FDA-Public Use
  Company Number: 2007SP008357

PATIENT
  Age: 3 Year
  Sex: Male

DRUGS (4)
  1. CLARITIN [Suspect]
     Indication: DRUG USE FOR UNKNOWN INDICATION
     Dosage: 5 ML;ONCE;PO
     Route: 048
     Dates: start: 20070329, end: 20070329
  2. TRIAMINIC SRT [Suspect]
     Indication: NASOPHARYNGITIS
     Dosage: 1 DF;Q6H;PO
     Route: 048
     Dates: start: 20061101, end: 20070329
  3. ROBITUSSIN /00048001/ [Suspect]
     Indication: DRUG USE FOR UNKNOWN INDICATION
     Dosage: 5 ML;ONCE;PO
     Route: 048
     Dates: start: 20070329, end: 20070329
  4. TOPAMAX [Suspect]
     Indication: DRUG USE FOR UNKNOWN INDICATION
     Dosage: PO
     Route: 048

REACTIONS (3)
  - BLOOD GLUCOSE DECREASED [None]
  - CONVULSION [None]
  - NUCLEAR MAGNETIC RESONANCE IMAGING ABNORMAL [None]
